FAERS Safety Report 24010356 (Version 1)
Quarter: 2024Q2

REPORT INFORMATION
  Report Type: Spontaneous
  Country: CN (occurrence: CN)
  Receive Date: 20240625
  Receipt Date: 20240625
  Transmission Date: 20240716
  Serious: Yes (Life-Threatening, Other)
  Sender: FDA-Public Use
  Company Number: CN-PFIZER INC-PV202400082142

PATIENT
  Age: 58 Year
  Sex: Male

DRUGS (7)
  1. METHYLPREDNISOLONE SODIUM SUCCINATE [Suspect]
     Active Substance: METHYLPREDNISOLONE SODIUM SUCCINATE
     Indication: Guillain-Barre syndrome
     Dosage: 1.0 G, 1X/DAY, REDUCED EVERY 3 DAYS,  PHASE1
  2. HUMAN IMMUNOGLOBULIN G [Concomitant]
     Active Substance: HUMAN IMMUNOGLOBULIN G
     Indication: Guillain-Barre syndrome
     Dosage: 400 MG/KG, 1X/DAY, PHASE I
     Route: 042
  3. HUMAN IMMUNOGLOBULIN G [Concomitant]
     Active Substance: HUMAN IMMUNOGLOBULIN G
     Dosage: 400 MG/KG, 1X/DAY, PHASE II (AT AN INTERVAL OF 2 WEEKS)
     Route: 042
  4. HUMAN IMMUNOGLOBULIN G [Concomitant]
     Active Substance: HUMAN IMMUNOGLOBULIN G
     Dosage: 400 MG/KG, 1X/DAY, PHASE III ( AFTER 2 WEEKS)
     Route: 042
  5. HUMAN IMMUNOGLOBULIN G [Concomitant]
     Active Substance: HUMAN IMMUNOGLOBULIN G
     Dosage: 400 MG/KG, 1X/DAY, PHASE IV ( AT AN INTERVAL OF 2 WEEKS)
     Route: 042
  6. HUMAN IMMUNOGLOBULIN G [Concomitant]
     Active Substance: HUMAN IMMUNOGLOBULIN G
     Dosage: UNK, PHASE V
     Route: 042
  7. HUMAN IMMUNOGLOBULIN G [Concomitant]
     Active Substance: HUMAN IMMUNOGLOBULIN G
     Dosage: UNK, PHASE VI
     Route: 042

REACTIONS (3)
  - Gastrointestinal ulcer haemorrhage [Unknown]
  - Drug ineffective for unapproved indication [Unknown]
  - Off label use [Unknown]
